FAERS Safety Report 13607709 (Version 1)
Quarter: 2017Q2

REPORT INFORMATION
  Report Type: Spontaneous
  Country: US (occurrence: US)
  Receive Date: 20170602
  Receipt Date: 20170602
  Transmission Date: 20170830
  Serious: Yes (Other)
  Sender: FDA-Public Use
  Company Number: US-BAYER-2017-095365

PATIENT
  Age: 31 Year
  Sex: Female
  Weight: 85.99 kg

DRUGS (2)
  1. COPPERTONE CLEARLY SHEER FOR SUNNY DAYS SPF 30 [Suspect]
     Active Substance: AVOBENZONE\OCTOCRYLENE\OXYBENZONE
     Route: 061
     Dates: start: 20170516, end: 20170516
  2. COPPERTONE CLEARLY SHEER FOR SUNNY DAYS SPF 30 [Suspect]
     Active Substance: AVOBENZONE\OCTOCRYLENE\OXYBENZONE
     Indication: PROPHYLAXIS
     Dosage: 1 TIME ONLY DOSE
     Route: 061
     Dates: start: 20170516, end: 20170516

REACTIONS (6)
  - Peripheral swelling [Recovering/Resolving]
  - Rash [Recovering/Resolving]
  - Haematemesis [Recovered/Resolved]
  - Hypersensitivity [Recovering/Resolving]
  - Pruritus [Recovering/Resolving]
  - Feeling hot [Recovering/Resolving]

NARRATIVE: CASE EVENT DATE: 20170516
